FAERS Safety Report 9909199 (Version 1)
Quarter: 2014Q1

REPORT INFORMATION
  Report Type: Spontaneous
  Country: US (occurrence: US)
  Receive Date: 20140219
  Receipt Date: 20140219
  Transmission Date: 20141002
  Serious: No
  Sender: FDA-Public Use
  Company Number: US-BAYER-2014-025908

PATIENT
  Age: 19 Year
  Sex: Female

DRUGS (1)
  1. MIRENA [Suspect]
     Indication: CONTRACEPTION
     Dosage: 20 MCG/24HR, CONT
     Route: 015
     Dates: start: 20130515

REACTIONS (6)
  - Nausea [None]
  - Food aversion [None]
  - Vaginal haemorrhage [None]
  - Vaginal discharge [None]
  - Amenorrhoea [None]
  - Hypomenorrhoea [None]
